FAERS Safety Report 17592020 (Version 1)
Quarter: 2020Q1

REPORT INFORMATION
  Report Type: Spontaneous
  Country: DE (occurrence: DE)
  Receive Date: 20200327
  Receipt Date: 20200327
  Transmission Date: 20200409
  Serious: Yes (Hospitalization, Other)
  Sender: FDA-Public Use
  Company Number: DE-ABBVIE-20K-062-3337897-00

PATIENT
  Sex: Male

DRUGS (2)
  1. BUDENOFALK [Concomitant]
     Active Substance: BUDESONIDE
     Indication: PRODUCT USED FOR UNKNOWN INDICATION
  2. HUMIRA [Suspect]
     Active Substance: ADALIMUMAB
     Indication: COLITIS ULCERATIVE
     Route: 058
     Dates: start: 2019

REACTIONS (5)
  - Infection [Unknown]
  - Jaundice [Recovered/Resolved]
  - Cholangiolitis [Unknown]
  - Cholangitis sclerosing [Unknown]
  - Toxicity to various agents [Unknown]
